FAERS Safety Report 14208265 (Version 1)
Quarter: 2017Q4

REPORT INFORMATION
  Report Type: Spontaneous
  Country: US (occurrence: US)
  Receive Date: 20171121
  Receipt Date: 20171121
  Transmission Date: 20180321
  Serious: Yes (Other)
  Sender: FDA-Public Use
  Company Number: None

PATIENT
  Age: 48 Year
  Sex: Female
  Weight: 85.5 kg

DRUGS (3)
  1. SUGAR FREE MENTHOL COUGH DROPS [Suspect]
     Active Substance: MENTHOL
     Indication: OROPHARYNGEAL PAIN
     Dosage: ?          QUANTITY:70 DROP(S);?
     Route: 048
     Dates: start: 20171115, end: 20171116
  2. DAY/NIGHT QUIL [Concomitant]
  3. SUGAR FREE MENTHOL COUGH DROPS [Suspect]
     Active Substance: MENTHOL
     Indication: NASOPHARYNGITIS
     Dosage: ?          QUANTITY:70 DROP(S);?
     Route: 048
     Dates: start: 20171115, end: 20171116

REACTIONS (4)
  - Diarrhoea [None]
  - Dysstasia [None]
  - Abdominal pain [None]
  - Muscle spasms [None]

NARRATIVE: CASE EVENT DATE: 20171116
